FAERS Safety Report 25085899 (Version 1)
Quarter: 2025Q1

REPORT INFORMATION
  Report Type: Spontaneous
  Country: US (occurrence: None)
  Receive Date: 20250316
  Receipt Date: 20250316
  Transmission Date: 20250409
  Serious: Yes (Disabling, Other)
  Sender: FDA-CTU
  Company Number: None

PATIENT
  Age: 49 Year
  Sex: Female
  Weight: 76.95 kg

DRUGS (1)
  1. STELARA [Suspect]
     Active Substance: USTEKINUMAB
     Indication: Crohn^s disease
     Route: 050

REACTIONS (10)
  - Dehydration [None]
  - Arthralgia [None]
  - Pain [None]
  - Headache [None]
  - Joint swelling [None]
  - Back pain [None]
  - Joint stiffness [None]
  - Neck pain [None]
  - Paranasal sinus discomfort [None]
  - Sinus pain [None]

NARRATIVE: CASE EVENT DATE: 20250307
